FAERS Safety Report 10709518 (Version 1)
Quarter: 2015Q1

REPORT INFORMATION
  Report Type: Spontaneous
  Country: US (occurrence: None)
  Receive Date: 20150113
  Receipt Date: 20150113
  Transmission Date: 20150721
  Serious: Yes (Other)
  Sender: FDA-Public Use
  Company Number: None

PATIENT
  Age: 55 Year
  Sex: Female
  Weight: 56.7 kg

DRUGS (1)
  1. MONTELUKAST 10 MG [Suspect]
     Active Substance: MONTELUKAST SODIUM
     Indication: ASTHMA
     Dosage: 1TAB ONCE DAILY TAKEN BY MOUTH
     Route: 048
     Dates: start: 20150109, end: 20150112

REACTIONS (2)
  - Mood altered [None]
  - Sleep disorder [None]

NARRATIVE: CASE EVENT DATE: 20150112
